FAERS Safety Report 4517552-3 (Version None)
Quarter: 2004Q4

REPORT INFORMATION
  Report Type: 
  Country: None (occurrence: None)
  Receive Date: 20041130
  Receipt Date: 20041115
  Transmission Date: 20050328
  Serious: Yes (Hospitalization)
  Sender: FDA-Public Use
  Company Number: US_0411108101

PATIENT
  Sex: Male

DRUGS (1)
  1. ALIMTA [Suspect]
     Dates: start: 20041001

REACTIONS (2)
  - DIZZINESS [None]
  - HAEMORRHAGE [None]
